FAERS Safety Report 11176422 (Version 4)
Quarter: 2015Q3

REPORT INFORMATION
  Report Type: Spontaneous
  Country: GB (occurrence: GB)
  Receive Date: 20150610
  Receipt Date: 20150923
  Transmission Date: 20151125
  Serious: Yes (Hospitalization, Other)
  Sender: FDA-Public Use
  Company Number: GB-AMGEN-GBRSP2015054235

PATIENT
  Age: 58 Year
  Sex: Female
  Weight: 37.5 kg

DRUGS (9)
  1. MIRTAZAPINE. [Concomitant]
     Active Substance: MIRTAZAPINE
     Dosage: UNK
  2. ENBREL [Suspect]
     Active Substance: ETANERCEPT
     Indication: PSORIATIC ARTHROPATHY
     Dosage: 50 MG, WEEKLY, ONCE PER WEEK
     Route: 065
     Dates: start: 200704, end: 20150416
  3. ENBREL [Suspect]
     Active Substance: ETANERCEPT
     Indication: PSORIASIS
     Dosage: UNK
     Route: 065
  4. ADCAL                              /07357001/ [Concomitant]
     Indication: ARTHROPATHY
     Dosage: UNK
     Dates: start: 2007
  5. FERROUS FUMARATE [Concomitant]
     Active Substance: FERROUS FUMARATE
     Dosage: UNK
  6. MEBEVERINE [Concomitant]
     Active Substance: MEBEVERINE
     Dosage: UNK
  7. ZOPICLONE [Concomitant]
     Active Substance: ZOPICLONE
     Dosage: UNK
  8. FOLIC ACID. [Concomitant]
     Active Substance: FOLIC ACID
     Dosage: UNK
     Dates: start: 1996
  9. IRON [Concomitant]
     Active Substance: IRON
     Indication: ANAEMIA
     Dosage: UNK
     Dates: start: 1967

REACTIONS (8)
  - Chronic kidney disease [Not Recovered/Not Resolved]
  - Infection [Not Recovered/Not Resolved]
  - Urosepsis [Recovered/Resolved]
  - Nephrolithiasis [Not Recovered/Not Resolved]
  - Stag horn calculus [Not Recovered/Not Resolved]
  - Acute kidney injury [Recovered/Resolved]
  - Gout [Not Recovered/Not Resolved]
  - Osteoporosis [Not Recovered/Not Resolved]

NARRATIVE: CASE EVENT DATE: 20080513
